FAERS Safety Report 25654140 (Version 1)
Quarter: 2025Q3

REPORT INFORMATION
  Report Type: Spontaneous
  Country: EU (occurrence: EU)
  Receive Date: 20250807
  Receipt Date: 20250807
  Transmission Date: 20251021
  Serious: Yes (Hospitalization, Other)
  Sender: CHEPLAPHARM
  Company Number: None

PATIENT
  Age: 27 Year
  Sex: Male

DRUGS (10)
  1. QUETIAPINE [Suspect]
     Active Substance: QUETIAPINE
     Route: 048
     Dates: start: 2020
  2. LYRICA [Suspect]
     Active Substance: PREGABALIN
  3. COCAINE [Suspect]
     Active Substance: COCAINE
  4. SUBUTEX [Suspect]
     Active Substance: BUPRENORPHINE HYDROCHLORIDE
  5. MIDOMAFETAMINE [Suspect]
     Active Substance: MIDOMAFETAMINE
  6. GABAPENTIN [Concomitant]
     Active Substance: GABAPENTIN
  7. CYAMEMAZINE [Concomitant]
     Active Substance: CYAMEMAZINE
  8. RITALIN [Concomitant]
     Active Substance: METHYLPHENIDATE HYDROCHLORIDE
  9. OXAZEPAM [Concomitant]
     Active Substance: OXAZEPAM
  10. ABILIFY [Concomitant]
     Active Substance: ARIPIPRAZOLE

REACTIONS (7)
  - Coma [Recovered/Resolved with Sequelae]
  - Bradypnoea [Recovered/Resolved]
  - Rhabdomyolysis [Recovered/Resolved]
  - Hepatic cytolysis [Recovered/Resolved]
  - Respiratory depression [Unknown]
  - Hypotonia [Unknown]
  - Miosis [Unknown]

NARRATIVE: CASE EVENT DATE: 20200323
